FAERS Safety Report 10924256 (Version 1)
Quarter: 2015Q1

REPORT INFORMATION
  Report Type: Spontaneous
  Country: FR (occurrence: FR)
  Receive Date: 20150318
  Receipt Date: 20150318
  Transmission Date: 20150721
  Serious: Yes (Hospitalization)
  Sender: FDA-Public Use
  Company Number: FR-SA-2015SA031320

PATIENT
  Age: 79 Year
  Sex: Male

DRUGS (14)
  1. LEPONEX [Interacting]
     Active Substance: CLOZAPINE
     Indication: HALLUCINATION
     Route: 065
     Dates: end: 20141223
  2. SINEMET [Interacting]
     Active Substance: CARBIDOPA\LEVODOPA
     Indication: PARKINSON^S DISEASE
     Dosage: 10 MG/100 MG
     Route: 048
     Dates: end: 20141210
  3. APOKINON [Interacting]
     Active Substance: APOMORPHINE
     Indication: DYSKINESIA
     Route: 065
     Dates: start: 20141215
  4. LEPONEX [Interacting]
     Active Substance: CLOZAPINE
     Indication: HALLUCINATION
     Dosage: STRENGTH: 1 DF IN THE VEN AND 0.25 IN THE MORNING
     Route: 048
  5. APOKINON [Interacting]
     Active Substance: APOMORPHINE
     Indication: DYSKINESIA
     Route: 065
     Dates: end: 20141213
  6. APOKINON [Interacting]
     Active Substance: APOMORPHINE
     Indication: DYSKINESIA
     Route: 065
     Dates: end: 20141222
  7. APROVEL [Suspect]
     Active Substance: IRBESARTAN
     Route: 048
     Dates: end: 20141222
  8. LEPONEX [Interacting]
     Active Substance: CLOZAPINE
     Indication: HALLUCINATION
     Route: 065
     Dates: start: 20141224
  9. APOKINON [Interacting]
     Active Substance: APOMORPHINE
     Indication: DYSKINESIA
     Route: 058
     Dates: start: 20141205
  10. APOKINON [Interacting]
     Active Substance: APOMORPHINE
     Indication: DYSKINESIA
     Route: 065
     Dates: start: 20141219, end: 20141219
  11. SINEMET [Interacting]
     Active Substance: CARBIDOPA\LEVODOPA
     Indication: PARKINSON^S DISEASE
     Route: 065
     Dates: start: 20141213
  12. EXELON [Interacting]
     Active Substance: RIVASTIGMINE TARTRATE
     Indication: HALLUCINATION
     Route: 062
     Dates: start: 20141213
  13. APOKINON [Interacting]
     Active Substance: APOMORPHINE
     Indication: DYSKINESIA
     Route: 065
     Dates: start: 20141220
  14. APOKINON [Interacting]
     Active Substance: APOMORPHINE
     Indication: DYSKINESIA
     Route: 065
     Dates: start: 20141223

REACTIONS (3)
  - Drug interaction [Unknown]
  - Malaise [Recovered/Resolved]
  - Orthostatic hypotension [Recovered/Resolved]

NARRATIVE: CASE EVENT DATE: 20141222
